FAERS Safety Report 4747984-X (Version None)
Quarter: 2005Q3

REPORT INFORMATION
  Report Type: 
  Country: None (occurrence: None)
  Receive Date: 20050818
  Receipt Date: 20050817
  Transmission Date: 20060218
  Serious: Yes (Hospitalization)
  Sender: FDA-Public Use
  Company Number: JP-SANOFI-SYNTHELABO-F01200501582

PATIENT
  Sex: Male
  Weight: 65 kg

DRUGS (3)
  1. OXALIPLATIN [Suspect]
     Indication: RECTAL CANCER
     Dosage: 120 MG
     Route: 042
     Dates: start: 20050718, end: 20050718
  2. FLUOROURACIL [Suspect]
     Indication: COLON CANCER
     Dosage: 2500 MG
     Route: 042
     Dates: start: 20050718, end: 20050718
  3. CALCIUM LEVOFOLINATE [Suspect]
     Indication: COLON CANCER
     Dosage: 250 MG
     Route: 042
     Dates: start: 20050718, end: 20050718

REACTIONS (1)
  - GASTRIC ULCER [None]
